FAERS Safety Report 20839746 (Version 1)
Quarter: 2022Q2

REPORT INFORMATION
  Report Type: Spontaneous
  Country: US (occurrence: None)
  Receive Date: 20220516
  Receipt Date: 20220516
  Transmission Date: 20220721
  Serious: Yes (Hospitalization)
  Sender: FDA-Public Use
  Company Number: None

PATIENT
  Sex: Female

DRUGS (5)
  1. HUMIRA [Suspect]
     Active Substance: ADALIMUMAB
     Indication: Rheumatoid arthritis
     Dosage: 40MG/0.4ML?INJECT 1 PEN UNDER THE SKIN (SUBCUTANEOUS INJECTION) EVERY TWO WEEKS ?
     Route: 058
     Dates: start: 20210113
  2. ATORVASTATIN [Concomitant]
     Active Substance: ATORVASTATIN
  3. HUMIRA [Concomitant]
     Active Substance: ADALIMUMAB
  4. MOTRIN IB TAB [Concomitant]
  5. TYLENOL TAB [Concomitant]

REACTIONS (3)
  - Rheumatoid arthritis [None]
  - Fatigue [None]
  - Joint stiffness [None]
